FAERS Safety Report 17200183 (Version 1)
Quarter: 2019Q4

REPORT INFORMATION
  Report Type: Spontaneous
  Country: GB (occurrence: GB)
  Receive Date: 20191226
  Receipt Date: 20191226
  Transmission Date: 20200122
  Serious: Yes (Other)
  Sender: FDA-Public Use
  Company Number: GB-ALKEM LABORATORIES LIMITED-GB-ALKEM-2019-07355

PATIENT
  Age: 77 Year
  Sex: Female

DRUGS (3)
  1. MYCOPHENOLATE MOFETIL. [Suspect]
     Active Substance: MYCOPHENOLATE MOFETIL
     Indication: LANGERHANS^ CELL HISTIOCYTOSIS
     Dosage: UNKNOWN
     Route: 065
     Dates: start: 2013
  2. AZATHIOPRINE. [Suspect]
     Active Substance: AZATHIOPRINE
     Indication: LANGERHANS^ CELL HISTIOCYTOSIS
     Dosage: UNKNOWN
     Route: 065
     Dates: start: 2007, end: 2013
  3. METHOTREXATE SODIUM. [Suspect]
     Active Substance: METHOTREXATE SODIUM
     Indication: LANGERHANS^ CELL HISTIOCYTOSIS
     Dosage: UNKNOWN
     Route: 065
     Dates: start: 2007

REACTIONS (1)
  - Condition aggravated [Recovering/Resolving]
